FAERS Safety Report 12616067 (Version 2)
Quarter: 2016Q3

REPORT INFORMATION
  Report Type: Report from Study
  Country: DE (occurrence: DE)
  Receive Date: 20160802
  Receipt Date: 20160815
  Transmission Date: 20161109
  Serious: Yes (Hospitalization, Other)
  Sender: FDA-Public Use
  Company Number: DE-GILEAD-2016-0225363

PATIENT
  Age: 42 Year
  Sex: Male
  Weight: 105 kg

DRUGS (7)
  1. DAKLINZA [Concomitant]
     Active Substance: DACLATASVIR
     Indication: CHRONIC HEPATITIS C
     Dosage: 60 MG, QD
     Route: 048
     Dates: start: 20150121, end: 20150707
  2. URSOFALK [Concomitant]
     Active Substance: URSODIOL
     Dosage: 250 MG, QD
     Dates: end: 20150121
  3. SOFOSBUVIR [Suspect]
     Active Substance: SOFOSBUVIR
     Indication: CHRONIC HEPATITIS C
     Dosage: 400 MG, QD
     Route: 048
     Dates: start: 20150121, end: 20150707
  4. TRAMAL [Concomitant]
     Active Substance: TRAMADOL
     Dosage: UNK
  5. COTRIMOXAZOL AL [Concomitant]
     Dosage: 960 MG, Q1WK
     Dates: start: 20140805, end: 20150121
  6. DELIX                              /00885601/ [Concomitant]
     Active Substance: RAMIPRIL
     Dosage: 2.5 MG, QD
  7. FUROSEMID                          /00032601/ [Concomitant]
     Active Substance: FUROSEMIDE
     Dosage: 40 MG, UNK

REACTIONS (1)
  - Renal failure [Recovered/Resolved]

NARRATIVE: CASE EVENT DATE: 20150210
